FAERS Safety Report 16854929 (Version 2)
Quarter: 2019Q4

REPORT INFORMATION
  Report Type: Report from Study
  Country: None (occurrence: US)
  Receive Date: 20190926
  Receipt Date: 20191017
  Transmission Date: 20200122
  Serious: Yes (Hospitalization)
  Sender: FDA-Public Use
  Company Number: US-ABBVIE-19K-163-2937715-00

PATIENT
  Sex: Female

DRUGS (1)
  1. HUMIRA [Suspect]
     Active Substance: ADALIMUMAB
     Indication: RHEUMATOID ARTHRITIS
     Route: 058
     Dates: start: 201905, end: 201908

REACTIONS (6)
  - Arthralgia [Unknown]
  - Haemoglobin decreased [Recovering/Resolving]
  - Large intestinal haemorrhage [Unknown]
  - Joint stiffness [Unknown]
  - Immunodeficiency [Unknown]
  - Joint swelling [Unknown]

NARRATIVE: CASE EVENT DATE: 2019
